FAERS Safety Report 9877760 (Version 1)
Quarter: 2014Q1

REPORT INFORMATION
  Report Type: Other
  Country: US (occurrence: US)
  Receive Date: 20140206
  Receipt Date: 20140206
  Transmission Date: 20141002
  Serious: No
  Sender: FDA-Public Use
  Company Number: US-ACORDA-ACO_39030_2013

PATIENT
  Age: 52 Year
  Sex: Female
  Weight: 55.78 kg

DRUGS (1)
  1. AMPYRA [Suspect]
     Indication: GAIT DISTURBANCE
     Dosage: 10 MG, Q 12 HRS
     Route: 048
     Dates: start: 201309

REACTIONS (2)
  - Faecal incontinence [Unknown]
  - Faeces soft [Not Recovered/Not Resolved]
